FAERS Safety Report 10741433 (Version 1)
Quarter: 2015Q1

REPORT INFORMATION
  Report Type: Spontaneous
  Country: US (occurrence: None)
  Receive Date: 20150123
  Receipt Date: 20150123
  Transmission Date: 20150721
  Serious: Yes (Hospitalization)
  Sender: FDA-Public Use
  Company Number: None

PATIENT
  Age: 58 Year
  Sex: Male
  Weight: 81.65 kg

DRUGS (1)
  1. INTRON A [Suspect]
     Active Substance: INTERFERON ALFA-2B
     Dosage: 84 MU
     Dates: end: 20140704

REACTIONS (4)
  - Pain [None]
  - Pneumonia [None]
  - Atelectasis [None]
  - Vomiting [None]

NARRATIVE: CASE EVENT DATE: 20140703
